FAERS Safety Report 6152517-X (Version None)
Quarter: 2009Q2

REPORT INFORMATION
  Report Type: 
  Country: None (occurrence: None)
  Receive Date: 20090413
  Receipt Date: 20090401
  Transmission Date: 20091009
  Serious: Yes (Hospitalization)
  Sender: FDA-Public Use
  Company Number: FR-WYE-G03432709

PATIENT
  Sex: Female

DRUGS (12)
  1. EFFEXOR [Suspect]
     Indication: DEPRESSION
     Route: 048
     Dates: start: 20090201, end: 20090301
  2. ALDACTONE [Interacting]
     Indication: HYPERTENSION
     Route: 048
     Dates: start: 20090128, end: 20090301
  3. KREDEX [Concomitant]
     Indication: HYPERTENSION
     Route: 048
     Dates: start: 20090128
  4. ZOLPIDEM [Concomitant]
     Indication: INSOMNIA
     Route: 048
     Dates: start: 20050101, end: 20090301
  5. AMLODIPINE BESYLATE [Concomitant]
     Indication: HYPERTENSION
     Route: 048
     Dates: start: 20090128, end: 20090312
  6. KARDEGIC [Concomitant]
     Indication: INFARCTION
     Route: 048
     Dates: start: 20050101
  7. HYDROCORTISONE [Concomitant]
     Indication: ADRENAL INSUFFICIENCY
     Route: 048
     Dates: start: 20090101, end: 20090301
  8. HYDROCORTISONE [Concomitant]
     Dosage: UNKNOWN
     Route: 048
     Dates: start: 20090301
  9. LEXOMIL [Concomitant]
     Indication: ANXIETY
     Route: 048
     Dates: start: 20050101, end: 20090301
  10. LEXOMIL [Concomitant]
     Dosage: UNKNOWN
     Route: 048
     Dates: start: 20090301
  11. BIPRETERAX [Interacting]
     Indication: HYPERTENSION
     Route: 048
     Dates: start: 20090128, end: 20090310
  12. ELISOR [Concomitant]
     Indication: INFARCTION
     Route: 048
     Dates: start: 20050101

REACTIONS (3)
  - CONFUSIONAL STATE [None]
  - DRUG INTERACTION [None]
  - HYPONATRAEMIA [None]
